FAERS Safety Report 18848478 (Version 2)
Quarter: 2021Q2

REPORT INFORMATION
  Report Type: Spontaneous
  Country: US (occurrence: US)
  Receive Date: 20210204
  Receipt Date: 20210624
  Transmission Date: 20210717
  Serious: Yes (Other)
  Sender: FDA-Public Use
  Company Number: US-TEVA-2021-US-1868989

PATIENT
  Age: 60 Year
  Sex: Male

DRUGS (12)
  1. AUSTEDO [Suspect]
     Active Substance: DEUTETRABENAZINE
     Indication: HUNTINGTON^S DISEASE
     Dosage: 48 MILLIGRAM DAILY; TWO TABLETS EVERY MORNING AND 2 TABLET DAILY AT BEDTIME
     Route: 065
     Dates: start: 2018, end: 202101
  2. LISINOPRIL. [Concomitant]
     Active Substance: LISINOPRIL
  3. DIVALPROEX SODIUM. [Concomitant]
     Active Substance: DIVALPROEX SODIUM
  4. ZOLOFT [Concomitant]
     Active Substance: SERTRALINE HYDROCHLORIDE
  5. DONEPEZIL HCL [Concomitant]
     Active Substance: DONEPEZIL HYDROCHLORIDE
  6. METFORMIN ER GASTRIC [Concomitant]
  7. CRESTOR [Concomitant]
     Active Substance: ROSUVASTATIN CALCIUM
  8. PEPCID [Concomitant]
     Active Substance: FAMOTIDINE
  9. PENICILLIN VK [Concomitant]
     Active Substance: PENICILLIN V POTASSIUM
  10. OXYBUTYNIN CHLORIDE. [Concomitant]
     Active Substance: OXYBUTYNIN CHLORIDE
  11. RISPERDAL [Concomitant]
     Active Substance: RISPERIDONE
  12. ASPIRIN. [Concomitant]
     Active Substance: ASPIRIN

REACTIONS (5)
  - Tremor [Not Recovered/Not Resolved]
  - Insurance issue [Unknown]
  - Therapy change [Unknown]
  - Choking [Not Recovered/Not Resolved]
  - Dysphagia [Not Recovered/Not Resolved]

NARRATIVE: CASE EVENT DATE: 20210108
